FAERS Safety Report 18678812 (Version 2)
Quarter: 2020Q4

REPORT INFORMATION
  Report Type: Report from Study
  Country: None (occurrence: CA)
  Receive Date: 20201230
  Receipt Date: 20201230
  Transmission Date: 20210114
  Serious: Yes (Other)
  Sender: FDA-Public Use
  Company Number: CA-ABBVIE-20K-028-3709668-00

PATIENT
  Sex: Female

DRUGS (1)
  1. RINVOQ [Suspect]
     Active Substance: UPADACITINIB
     Indication: RHEUMATOID ARTHRITIS
     Route: 048

REACTIONS (6)
  - Asthma [Unknown]
  - General physical health deterioration [Unknown]
  - Arthralgia [Unknown]
  - Osteoarthritis [Unknown]
  - Pain [Unknown]
  - Blindness [Unknown]
